FAERS Safety Report 25439790 (Version 1)
Quarter: 2025Q2

REPORT INFORMATION
  Report Type: Spontaneous
  Country: US (occurrence: None)
  Receive Date: 20250613
  Receipt Date: 20250613
  Transmission Date: 20250716
  Serious: No
  Sender: FDA-CTU
  Company Number: None

PATIENT
  Age: 7 Week
  Sex: Female
  Weight: 49.9 kg

DRUGS (1)
  1. OLUMIANT [Suspect]
     Active Substance: BARICITINIB
     Indication: Alopecia
     Dosage: FREQUENCY : DAILY;?
     Route: 048
     Dates: end: 20250521

REACTIONS (2)
  - Fatigue [None]
  - Therapy interrupted [None]

NARRATIVE: CASE EVENT DATE: 20250521
